FAERS Safety Report 12483608 (Version 1)
Quarter: 2016Q2

REPORT INFORMATION
  Report Type: Spontaneous
  Country: US (occurrence: None)
  Receive Date: 20160617
  Receipt Date: 20160617
  Transmission Date: 20160815
  Serious: Yes (Other)
  Sender: FDA-Public Use
  Company Number: 2280705-2016-00015

PATIENT
  Age: 9 Month
  Sex: Female

DRUGS (1)
  1. ORAJEL BABY UNSPECIFIED7.5%BENZOCAINE CHURCH + DWIGHT CO., INC . [Suspect]
     Active Substance: BENZOCAINE
     Indication: TEETHING
     Dosage: 1 DF TWICE ORAL
     Route: 048
     Dates: start: 20160508, end: 20160602

REACTIONS (1)
  - Methaemoglobinaemia [None]

NARRATIVE: CASE EVENT DATE: 20160508
